FAERS Safety Report 7302199-6 (Version None)
Quarter: 2011Q1

REPORT INFORMATION
  Report Type: 
  Country: None (occurrence: None)
  Receive Date: 20110218
  Receipt Date: 20110208
  Transmission Date: 20110831
  Serious: Yes (Other)
  Sender: FDA-Public Use
  Company Number: PHHY2011FR06583

PATIENT
  Sex: Female
  Weight: 52 kg

DRUGS (3)
  1. AFINITOR [Suspect]
     Dosage: 5 MG, DAILY
     Dates: end: 20101125
  2. AFINITOR [Suspect]
     Indication: RENAL CELL CARCINOMA
     Dosage: 10 MG, QD
     Dates: start: 20090201
  3. LEVOTHYROX [Concomitant]
     Indication: HYPOTHYROIDISM
     Dosage: 50 UG, QD
     Route: 048

REACTIONS (6)
  - LUNG DISORDER [None]
  - INTERSTITIAL LUNG DISEASE [None]
  - DECREASED APPETITE [None]
  - PYREXIA [None]
  - COUGH [None]
  - DYSPNOEA [None]
